FAERS Safety Report 7141933-5 (Version None)
Quarter: 2010Q4

REPORT INFORMATION
  Report Type: 
  Country: None (occurrence: None)
  Receive Date: 20101202
  Receipt Date: 20101202
  Transmission Date: 20110411
  Serious: Yes (Death, Life-Threatening, Hospitalization)
  Sender: FDA-Public Use
  Company Number: None

PATIENT
  Sex: Male
  Weight: 86.1834 kg

DRUGS (1)
  1. LYRICA [Suspect]
     Indication: DIABETIC NEUROPATHY
     Dosage: ONCE DAILY 047 (ORAL)
     Route: 048
     Dates: start: 20081101, end: 20090101

REACTIONS (3)
  - DEAFNESS [None]
  - RESPIRATORY ARREST [None]
  - WHEEZING [None]
